FAERS Safety Report 5114639-1 (Version None)
Quarter: 2006Q3

REPORT INFORMATION
  Report Type: 
  Country: None (occurrence: None)
  Receive Date: 20060922
  Receipt Date: 20060914
  Transmission Date: 20061208
  Serious: Yes (Other)
  Sender: FDA-Public Use
  Company Number: 2006112183

PATIENT

DRUGS (1)
  1. GEODON [Suspect]

REACTIONS (2)
  - CATATONIA [None]
  - IMMOBILE [None]
